FAERS Safety Report 24406316 (Version 1)
Quarter: 2024Q4

REPORT INFORMATION
  Report Type: Spontaneous
  Country: CN (occurrence: CN)
  Receive Date: 20241007
  Receipt Date: 20241007
  Transmission Date: 20250114
  Serious: Yes (Other)
  Sender: SANOFI AVENTIS
  Company Number: CN-SA-2024SA284475

PATIENT
  Age: 48 Year
  Sex: Male

DRUGS (4)
  1. OXALIPLATIN [Suspect]
     Active Substance: OXALIPLATIN
     Indication: Rectal adenocarcinoma
     Dosage: 130 MG/M2, Q3W (D1)
     Route: 041
     Dates: start: 2022, end: 202205
  2. CAPECITABINE [Suspect]
     Active Substance: CAPECITABINE
     Indication: Rectal adenocarcinoma
     Dosage: 1000 MG/M2, BID (D1-D14; EACH TREATMENT CIRCLE LASTING FOR 3 WEEKS)
     Route: 048
     Dates: start: 2022, end: 202205
  3. BEVACIZUMAB [Suspect]
     Active Substance: BEVACIZUMAB
     Indication: Rectal adenocarcinoma
     Dosage: 7.5 MG/KG, Q3W (D2)
     Route: 041
     Dates: start: 2022, end: 202205
  4. TISLELIZUMAB [Suspect]
     Active Substance: TISLELIZUMAB
     Indication: Rectal adenocarcinoma
     Dosage: 200 MG, Q3W (D2)
     Route: 041
     Dates: start: 2022, end: 2022

REACTIONS (23)
  - Necrotising fasciitis [Recovered/Resolved]
  - Proctalgia [Recovered/Resolved]
  - Anorectal discomfort [Recovered/Resolved]
  - Scrotal discomfort [Recovered/Resolved]
  - Scrotal pain [Recovered/Resolved]
  - Musculoskeletal pain [Recovered/Resolved]
  - Groin pain [Recovered/Resolved]
  - Musculoskeletal discomfort [Recovered/Resolved]
  - Erythema [Recovered/Resolved]
  - Swelling [Recovered/Resolved]
  - Pyrexia [Recovered/Resolved]
  - Dermatitis [Recovered/Resolved]
  - Tumour exudation [Recovered/Resolved]
  - Anal abscess [Recovered/Resolved]
  - Abscess rupture [Recovered/Resolved]
  - Flatulence [Recovered/Resolved]
  - Alpha haemolytic streptococcal infection [Recovered/Resolved]
  - Escherichia infection [Recovered/Resolved]
  - Respiratory alkalosis [Recovered/Resolved]
  - Metabolic acidosis [Recovered/Resolved]
  - Hyperlactacidaemia [Recovered/Resolved]
  - Septic shock [Recovered/Resolved]
  - Septic encephalopathy [Recovered/Resolved]

NARRATIVE: CASE EVENT DATE: 20220501
